FAERS Safety Report 20904185 (Version 3)
Quarter: 2022Q3

REPORT INFORMATION
  Report Type: Report from Study
  Country: CH (occurrence: CH)
  Receive Date: 20220602
  Receipt Date: 20220704
  Transmission Date: 20221026
  Serious: Yes (Hospitalization)
  Sender: FDA-Public Use
  Company Number: CH-ABBVIE-22K-151-4352238-00

PATIENT
  Sex: Female

DRUGS (10)
  1. CARBIDOPA\LEVODOPA [Suspect]
     Active Substance: CARBIDOPA\LEVODOPA
     Indication: Parkinson^s disease
     Dosage: MD 3.8ML, CRD 2.2ML/H, CRN 0ML/H, ED 0.5ML
     Route: 050
     Dates: start: 20220221, end: 20220402
  2. CARBIDOPA\LEVODOPA [Suspect]
     Active Substance: CARBIDOPA\LEVODOPA
     Dosage: MD 3.8ML, CRD 2.2ML/H, CRN 0ML/H, ED NA
     Route: 050
     Dates: start: 20220403, end: 20220404
  3. CARBIDOPA\LEVODOPA [Suspect]
     Active Substance: CARBIDOPA\LEVODOPA
     Dosage: MD 3.8ML, CRD 2.4ML/H, CRN 0ML/H, ED 0.5ML
     Route: 050
     Dates: start: 20220406, end: 20220411
  4. CARBIDOPA\LEVODOPA [Suspect]
     Active Substance: CARBIDOPA\LEVODOPA
     Dosage: MD 3.8ML, CRD 2.2ML/H, CRN 0ML/H, ED 0.5ML
     Route: 050
     Dates: start: 20220411, end: 20220428
  5. CARBIDOPA\LEVODOPA [Suspect]
     Active Substance: CARBIDOPA\LEVODOPA
     Dosage: MD 3.8 ML, CRD 2.3 ML/H, CRN 0 ML/H, ED 0.5 ML?16H THERAPY
     Route: 050
     Dates: start: 20220428, end: 20220502
  6. CARBIDOPA\LEVODOPA [Suspect]
     Active Substance: CARBIDOPA\LEVODOPA
     Dosage: MD: 4ML, CRD: 2.2 ML/H, ED: 0.5 ML
     Route: 050
     Dates: start: 20220502, end: 20220509
  7. CARBIDOPA\LEVODOPA [Suspect]
     Active Substance: CARBIDOPA\LEVODOPA
     Dosage: MD: 4ML, CRD: 2.4 ML/H, ED: 0.5 ML
     Route: 050
     Dates: start: 20220509, end: 20220517
  8. CARBIDOPA\LEVODOPA [Suspect]
     Active Substance: CARBIDOPA\LEVODOPA
     Dosage: MD: 4.5ML, CRD: 2.3 ML/H, ED: 0.5 ML 16H THERAPY
     Route: 050
     Dates: start: 20220517, end: 20220520
  9. CARBIDOPA\LEVODOPA [Suspect]
     Active Substance: CARBIDOPA\LEVODOPA
     Dosage: MD: 4.5ML, CRD: 2.1 ML/H, ED: 0.5 ML, 16H THERAPY
     Route: 050
     Dates: start: 20220520, end: 20220529
  10. CARBIDOPA\LEVODOPA [Suspect]
     Active Substance: CARBIDOPA\LEVODOPA
     Dosage: MD: 4.5ML, CRD: 1.5 ML/H, ED: 0.5 ML?16TH THERAPY
     Route: 050
     Dates: start: 20220529

REACTIONS (12)
  - Hypertension [Unknown]
  - Fall [Not Recovered/Not Resolved]
  - Dyskinesia [Not Recovered/Not Resolved]
  - Inappropriate schedule of product administration [Unknown]
  - Musculoskeletal stiffness [Not Recovered/Not Resolved]
  - Gait disturbance [Unknown]
  - Asthenia [Unknown]
  - Anxiety [Unknown]
  - Dizziness [Unknown]
  - Flatulence [Unknown]
  - Freezing phenomenon [Unknown]
  - On and off phenomenon [Recovering/Resolving]

NARRATIVE: CASE EVENT DATE: 20220101
